FAERS Safety Report 9518615 (Version 1)
Quarter: 2013Q1

REPORT INFORMATION
  Report Type: Spontaneous
  Country: US (occurrence: None)
  Receive Date: 20130305
  Receipt Date: 20130305
  Transmission Date: 20140127
  Serious: Yes (Other)
  Sender: FDA-Public Use
  Company Number: 163-21880-12080766

PATIENT
  Age: 74 Year
  Sex: Female

DRUGS (5)
  1. REVLIMID [Suspect]
     Indication: PLASMA CELL MYELOMA
     Dosage: 15 NGM 1 IN 1 D, PO
     Route: 048
     Dates: start: 20111210
  2. ENOXAPARIN (ENOXAPARIN) (UNKNOWN)? [Concomitant]
  3. DEXAMETHASONE (DEXAMETHASONE) (UNKNOWN) [Concomitant]
  4. ZOMETA (ZOLEDRONIC ACID) (UNKNOWN)? [Concomitant]
  5. VELCADE [Concomitant]

REACTIONS (1)
  - Pollakiuria [None]
